FAERS Safety Report 10217260 (Version 2)
Quarter: 2018Q3

REPORT INFORMATION
  Report Type: Report from Study
  Country: CA (occurrence: CA)
  Receive Date: 20140604
  Receipt Date: 20180726
  Transmission Date: 20181010
  Serious: Yes (Hospitalization)
  Sender: FDA-Public Use
  Company Number: PHHY2014CA068442

PATIENT
  Age: 61 Year
  Sex: Female

DRUGS (6)
  1. ACLASTA [Suspect]
     Active Substance: ZOLEDRONIC ACID
     Indication: OSTEOPOROSIS
     Dosage: 5 MG, UNK
     Route: 042
     Dates: start: 20120627
  2. ACLASTA [Suspect]
     Active Substance: ZOLEDRONIC ACID
     Dosage: 5 MG, UNK
     Route: 042
     Dates: start: 20130628
  3. ACLASTA [Suspect]
     Active Substance: ZOLEDRONIC ACID
     Dosage: 5 MG, UNK
     Route: 042
     Dates: start: 20140624
  4. ACLASTA [Suspect]
     Active Substance: ZOLEDRONIC ACID
     Dosage: 5 MG, UNK
     Route: 042
     Dates: start: 20160708
  5. ACLASTA [Suspect]
     Active Substance: ZOLEDRONIC ACID
     Dosage: 5 MG, UNK
     Route: 042
     Dates: start: 20150703
  6. ACLASTA [Suspect]
     Active Substance: ZOLEDRONIC ACID
     Dosage: 5 MG, UNK
     Route: 042
     Dates: start: 20170727

REACTIONS (2)
  - Sleep apnoea syndrome [Unknown]
  - Hepatic neoplasm [Unknown]

NARRATIVE: CASE EVENT DATE: 201402
